FAERS Safety Report 6689977-1 (Version None)
Quarter: 2010Q2

REPORT INFORMATION
  Report Type: 
  Country: None (occurrence: None)
  Receive Date: 20100421
  Receipt Date: 20100409
  Transmission Date: 20101027
  Serious: Yes (Other)
  Sender: FDA-Public Use
  Company Number: US-PFIZER INC-2010044745

PATIENT
  Sex: Male
  Weight: 80.6 kg

DRUGS (10)
  1. SUNITINIB MALATE [Suspect]
     Indication: GLIOBLASTOMA MULTIFORME
     Dosage: 25  MG, UNK
     Dates: start: 20100224, end: 20100405
  2. SUNITINIB MALATE [Suspect]
     Dosage: 12.5 MG, UNK
     Dates: start: 20100224, end: 20100405
  3. ADVAIR DISKUS 100/50 [Concomitant]
     Dosage: 2 PUFFS, 2X/DAY
  4. MONTELUKAST SODIUM [Concomitant]
  5. PREVACID [Concomitant]
  6. LAMICTAL [Concomitant]
     Dosage: 200 MG, 2X/DAY
  7. DILANTIN [Concomitant]
     Dosage: 300 MG, 1X/DAY
  8. BACTRIM [Concomitant]
  9. DECADRON [Concomitant]
     Dosage: 4 MG, 3X/DAY
  10. LISINOPRIL [Concomitant]
     Dosage: 10 MG, 1X/DAY

REACTIONS (3)
  - ATAXIA [None]
  - HYPERTENSION [None]
  - VISION BLURRED [None]
